FAERS Safety Report 8006268-7 (Version None)
Quarter: 2011Q4

REPORT INFORMATION
  Report Type: 
  Country: None (occurrence: None)
  Receive Date: 20111226
  Receipt Date: 20111213
  Transmission Date: 20120403
  Serious: Yes (Hospitalization, Other)
  Sender: FDA-Public Use
  Company Number: PHHY2011FR109690

PATIENT
  Sex: Male

DRUGS (1)
  1. ZOMETA [Suspect]
     Indication: METASTASIS
     Dosage: 1 DF, MONTHLY
     Dates: start: 20101118, end: 20110620

REACTIONS (2)
  - OSTEONECROSIS OF JAW [None]
  - TOOTH ABSCESS [None]
